FAERS Safety Report 5767368-5 (Version None)
Quarter: 2008Q2

REPORT INFORMATION
  Report Type: 
  Country: None (occurrence: None)
  Receive Date: 20080612
  Receipt Date: 20080603
  Transmission Date: 20081010
  Serious: Yes (Other)
  Sender: FDA-Public Use
  Company Number: B0360405A

PATIENT
  Age: 38 Year
  Sex: Male

DRUGS (1)
  1. PAROXETINE HCL [Suspect]
     Indication: POST-TRAUMATIC STRESS DISORDER
     Route: 065
     Dates: start: 20020828, end: 20021101

REACTIONS (9)
  - ADVERSE DRUG REACTION [None]
  - AGGRESSION [None]
  - AGITATION [None]
  - DEPRESSED LEVEL OF CONSCIOUSNESS [None]
  - DRUG WITHDRAWAL SYNDROME [None]
  - EMOTIONAL DISORDER [None]
  - PARAESTHESIA [None]
  - PREMATURE EJACULATION [None]
  - TINNITUS [None]
